FAERS Safety Report 10138239 (Version 2)
Quarter: 2014Q3

REPORT INFORMATION
  Report Type: Spontaneous
  Country: US (occurrence: US)
  Receive Date: 20140429
  Receipt Date: 20140923
  Transmission Date: 20150326
  Serious: Yes (Hospitalization)
  Sender: FDA-Public Use
  Company Number: US-BAYER-2014-060157

PATIENT
  Age: 15 Year
  Sex: Female
  Weight: 58.96 kg

DRUGS (5)
  1. MORPHINE [Concomitant]
     Active Substance: MORPHINE
  2. YAZ [Suspect]
     Active Substance: DROSPIRENONE\ETHINYL ESTRADIOL
     Indication: ACNE
     Dosage: UNK
     Dates: start: 200401, end: 200403
  3. CLINDAMYCIN PHOSPHATE. [Concomitant]
     Active Substance: CLINDAMYCIN PHOSPHATE
     Dosage: 1 %, UNK
     Dates: start: 20040114
  4. ALEVE [Concomitant]
     Active Substance: NAPROXEN SODIUM
  5. ORTHO TRICYCLEN [Concomitant]

REACTIONS (9)
  - Anxiety [None]
  - Quality of life decreased [None]
  - Fear of disease [None]
  - Pain [Recovered/Resolved]
  - Emotional distress [None]
  - Pulmonary embolism [Recovered/Resolved]
  - Injury [Recovered/Resolved]
  - Deep vein thrombosis [Recovered/Resolved]
  - Anhedonia [None]

NARRATIVE: CASE EVENT DATE: 200403
